FAERS Safety Report 4768744-X (Version None)
Quarter: 2005Q3

REPORT INFORMATION
  Report Type: 
  Country: None (occurrence: None)
  Receive Date: 20050914
  Receipt Date: 20050905
  Transmission Date: 20060218
  Serious: Yes (Death)
  Sender: FDA-Public Use
  Company Number: HCM-0111

PATIENT
  Age: 77 Year
  Sex: Male

DRUGS (11)
  1. TOPOTECAN [Suspect]
     Indication: SMALL CELL LUNG CANCER STAGE UNSPECIFIED
     Dosage: 1MG PER DAY
     Route: 042
     Dates: start: 20021111, end: 20021115
  2. CEFTRIAXZONE [Concomitant]
     Dosage: 2G PER DAY
     Route: 042
     Dates: start: 20021109, end: 20021119
  3. RINGERS ACETATE [Concomitant]
     Dosage: 500ML PER DAY
     Route: 042
     Dates: start: 20021110, end: 20021130
  4. CARBAZOCHROME SODIUM SULFONATE [Concomitant]
     Dosage: 100MG PER DAY
     Route: 042
     Dates: start: 20021110, end: 20021130
  5. TRANEXAMIC ACID [Concomitant]
     Route: 065
     Dates: start: 20021110, end: 20021130
  6. ONDANSETRON [Concomitant]
     Dosage: 4MG PER DAY
     Route: 048
     Dates: start: 20021111, end: 20021117
  7. LANSOPRAZOLE [Concomitant]
     Dosage: 15MG PER DAY
     Route: 048
     Dates: start: 20021101, end: 20021130
  8. ASPIRIN [Concomitant]
     Dosage: 100MG PER DAY
     Route: 048
     Dates: start: 20021101, end: 20021130
  9. LACTOMIN [Concomitant]
     Dosage: 3G PER DAY
     Route: 048
     Dates: start: 20021101, end: 20021130
  10. NATEGLINIDE [Concomitant]
     Dosage: 270MG PER DAY
     Route: 048
     Dates: start: 20021101, end: 20021130
  11. FUROSEMIDE [Concomitant]
     Dosage: 40MG PER DAY
     Route: 048
     Dates: start: 20021101, end: 20021130

REACTIONS (7)
  - ANAEMIA [None]
  - HAEMOGLOBIN DECREASED [None]
  - PLATELET COUNT DECREASED [None]
  - RED BLOOD CELL COUNT DECREASED [None]
  - RESPIRATORY FAILURE [None]
  - SMALL CELL LUNG CANCER STAGE UNSPECIFIED [None]
  - WHITE BLOOD CELL COUNT DECREASED [None]
